FAERS Safety Report 19198901 (Version 1)
Quarter: 2021Q2

REPORT INFORMATION
  Report Type: Spontaneous
  Country: US (occurrence: US)
  Receive Date: 20210429
  Receipt Date: 20210429
  Transmission Date: 20210717
  Serious: No
  Sender: FDA-Public Use
  Company Number: US-ROCHE-2674444

PATIENT
  Age: 63 Year
  Sex: Female
  Weight: 58.57 kg

DRUGS (3)
  1. LYRICA [Concomitant]
     Active Substance: PREGABALIN
     Indication: NEUROPATHY PERIPHERAL
  2. LETROZOLE. [Concomitant]
     Active Substance: LETROZOLE
     Dosage: ESTROGEN BLOCKER
     Route: 048
     Dates: start: 202009
  3. KADCYLA [Suspect]
     Active Substance: ADO-TRASTUZUMAB EMTANSINE
     Indication: HER2 POSITIVE BREAST CANCER
     Route: 042
     Dates: start: 20200714

REACTIONS (4)
  - Erythema [Recovering/Resolving]
  - Catheter site urticaria [Recovering/Resolving]
  - Device failure [Recovered/Resolved]
  - Breast swelling [Recovering/Resolving]

NARRATIVE: CASE EVENT DATE: 20200828
